FAERS Safety Report 23404534 (Version 2)
Quarter: 2024Q1

REPORT INFORMATION
  Report Type: Spontaneous
  Country: IT (occurrence: IT)
  Receive Date: 20240116
  Receipt Date: 20240221
  Transmission Date: 20240410
  Serious: Yes (Other)
  Sender: FDA-Public Use
  Company Number: IT-JNJFOC-20240116389

PATIENT
  Age: 51 Year
  Sex: Female
  Weight: 116 kg

DRUGS (18)
  1. TECVAYLI [Suspect]
     Active Substance: TECLISTAMAB-CQYV
     Indication: Plasma cell myeloma
     Dosage: PRIMA STEP UP DOSE
     Route: 058
     Dates: start: 20230621
  2. TECVAYLI [Suspect]
     Active Substance: TECLISTAMAB-CQYV
     Dosage: SECONDA STEP UP DOSE
     Route: 058
     Dates: start: 20230623
  3. TECVAYLI [Suspect]
     Active Substance: TECLISTAMAB-CQYV
     Dosage: FULL DOSE
     Route: 058
     Dates: start: 20230626
  4. TECVAYLI [Suspect]
     Active Substance: TECLISTAMAB-CQYV
     Dosage: FULL DOSE
     Route: 058
     Dates: start: 20230714
  5. VENLAFAXINE [Concomitant]
     Active Substance: VENLAFAXINE HYDROCHLORIDE
     Dosage: 1 CO X 2 DAYS
  6. VENLAFAXINE HYDROCHLORIDE [Concomitant]
     Active Substance: VENLAFAXINE HYDROCHLORIDE
  7. ACYCLOVIR [Concomitant]
     Active Substance: ACYCLOVIR
     Dosage: 1/2 HOURS 8
  8. ATORVASTATIN [Concomitant]
     Active Substance: ATORVASTATIN
     Dosage: 20
  9. OMEPRAZOLE [Concomitant]
     Active Substance: OMEPRAZOLE
     Dosage: 1 TABLET IN THE MORNING
  10. TIROSINT [Concomitant]
     Active Substance: LEVOTHYROXINE SODIUM
     Dosage: 100 MICROG VIALS: 175 MICROG (1.75 FL) IN THE MORNING 10 MIN BEFORE BREAKFAST
  11. INDERAL [Concomitant]
     Active Substance: PROPRANOLOL HYDROCHLORIDE
     Dosage: 1 TABLET AT 8 AM AND 1 TABLET AT 20 AM
  12. EZETIMIBE [Concomitant]
     Active Substance: EZETIMIBE
     Dosage: 1 HOUR IN THE EVENING
  13. OXYCONTIN [Concomitant]
     Active Substance: OXYCODONE HYDROCHLORIDE
     Dosage: 1 TABLET IN THE MORNING,  1 TABLET IN THE EVENING
  14. HUMALOG [Concomitant]
     Active Substance: INSULIN LISPRO
     Dosage: 57 U AT BREAKFAST, 58 U AT LUNCH AND 56 U AT DINNER AFTER DTX
  15. TRESIBA [Concomitant]
     Active Substance: INSULIN DEGLUDEC
     Dosage: 110 UI 1 FL SC H 21.30
  16. RIVOTRIL [Concomitant]
     Active Substance: CLONAZEPAM
     Dosage: 5 GTT AB
  17. LAMIVUDINE [Concomitant]
     Active Substance: LAMIVUDINE
     Dosage: 1 CP H 16
  18. FOLIC ACID [Concomitant]
     Active Substance: FOLIC ACID
     Dosage: 4 PM

REACTIONS (1)
  - Polyneuropathy [Recovered/Resolved]
